FAERS Safety Report 22124726 (Version 1)
Quarter: 2023Q1

REPORT INFORMATION
  Report Type: Spontaneous
  Country: SE (occurrence: SE)
  Receive Date: 20230322
  Receipt Date: 20230322
  Transmission Date: 20230417
  Serious: Yes (Other)
  Sender: FDA-Public Use
  Company Number: None

PATIENT
  Age: 34 Year
  Sex: Female

DRUGS (1)
  1. MIRENA [Suspect]
     Active Substance: LEVONORGESTREL
     Dosage: 20?G/DAY
     Route: 015
     Dates: start: 20220202, end: 20220323

REACTIONS (3)
  - Heavy menstrual bleeding [Recovering/Resolving]
  - Arthralgia [Recovering/Resolving]
  - Bacterial vaginosis [Recovering/Resolving]

NARRATIVE: CASE EVENT DATE: 20220101
